FAERS Safety Report 12755367 (Version 2)
Quarter: 2016Q4

REPORT INFORMATION
  Report Type: Spontaneous
  Country: SI (occurrence: SI)
  Receive Date: 20160916
  Receipt Date: 20161205
  Transmission Date: 20170207
  Serious: Yes (Hospitalization)
  Sender: FDA-Public Use
  Company Number: PHHY2016SI123761

PATIENT
  Age: 30 Year
  Sex: Female
  Weight: 53 kg

DRUGS (30)
  1. SANVAL [Suspect]
     Active Substance: ZOLPIDEM TARTRATE
     Dosage: 5-10 MG IN THE EVENING AS NEEDED
     Route: 065
  2. SANVAL [Suspect]
     Active Substance: ZOLPIDEM TARTRATE
     Dosage: 5-10 MG IN THE EVENING AS NEEDED
     Route: 065
  3. RISPERDAL [Suspect]
     Active Substance: RISPERIDONE
     Dosage: 4 MG, PRN
     Route: 065
  4. EFFORTIL [Suspect]
     Active Substance: ETILEFRINE HYDROCHLORIDE
     Dosage: 5 MG, TID
     Route: 065
  5. SANVAL [Suspect]
     Active Substance: ZOLPIDEM TARTRATE
     Indication: SCHIZOAFFECTIVE DISORDER
     Dosage: 5-10 MG IN THE EVENING AS NEEDED
     Route: 065
     Dates: start: 20000728
  6. LORAM [Suspect]
     Active Substance: LORAZEPAM
     Dosage: 1 MG
     Route: 065
     Dates: start: 20000919, end: 20000925
  7. APAURIN [Suspect]
     Active Substance: DIAZEPAM
     Indication: SCHIZOAFFECTIVE DISORDER
     Dosage: 10 MG (15.00 H)
     Route: 030
     Dates: start: 20000728
  8. APAURIN [Suspect]
     Active Substance: DIAZEPAM
     Dosage: 10 MG, AS NEEDED
     Route: 030
  9. ZOLOFT [Suspect]
     Active Substance: SERTRALINE HYDROCHLORIDE
     Dosage: 50 MG, BID
     Route: 065
  10. LADIOMIL [Suspect]
     Active Substance: MAPROTILINE HYDROCHLORIDE
     Indication: SCHIZOAFFECTIVE DISORDER
     Dosage: 25 MG (IN THE EVENING)
     Route: 065
     Dates: start: 20000728
  11. AKINETON [Suspect]
     Active Substance: BIPERIDEN HYDROCHLORIDE
     Indication: SCHIZOAFFECTIVE DISORDER
     Dosage: 1 DF, BID
     Route: 065
  12. SANVAL [Suspect]
     Active Substance: ZOLPIDEM TARTRATE
     Dosage: 5-10 MG IN THE EVENING AS NEEDED
     Route: 065
  13. LORAM [Suspect]
     Active Substance: LORAZEPAM
     Indication: SCHIZOAFFECTIVE DISORDER
     Dosage: 1-1-2.5 MG
     Route: 065
     Dates: start: 20000731
  14. LORAM [Suspect]
     Active Substance: LORAZEPAM
     Dosage: 3 MG, QD
     Route: 065
  15. ZOLOFT [Suspect]
     Active Substance: SERTRALINE HYDROCHLORIDE
     Indication: SCHIZOAFFECTIVE DISORDER
     Dosage: 50 MG, BID
     Route: 065
     Dates: start: 20000728
  16. ZOLOFT [Suspect]
     Active Substance: SERTRALINE HYDROCHLORIDE
     Dosage: 100 MG, IN THE MORNING
     Route: 065
  17. LORAM [Suspect]
     Active Substance: LORAZEPAM
     Dosage: 0-1-1 MG
     Route: 065
  18. LORAM [Suspect]
     Active Substance: LORAZEPAM
     Dosage: 1-1-2.5 MG,
     Route: 065
  19. LORAM [Suspect]
     Active Substance: LORAZEPAM
     Dosage: 1 MG, AS NEEDED
     Route: 065
  20. AKINETON [Suspect]
     Active Substance: BIPERIDEN HYDROCHLORIDE
     Dosage: 1 DF, BID
     Route: 065
  21. RISPERDAL [Suspect]
     Active Substance: RISPERIDONE
     Dosage: 6 MG, PRN
     Route: 065
  22. EFFORTIL [Suspect]
     Active Substance: ETILEFRINE HYDROCHLORIDE
     Dosage: 5 MG, TID
     Route: 065
  23. LADIOMIL [Suspect]
     Active Substance: MAPROTILINE HYDROCHLORIDE
     Dosage: 25 MG (IN THE EVENING)
     Route: 065
  24. LORAM [Suspect]
     Active Substance: LORAZEPAM
     Dosage: 2 MG, BID
     Route: 065
     Dates: start: 20000918
  25. RISPERDAL [Suspect]
     Active Substance: RISPERIDONE
     Indication: SCHIZOAFFECTIVE DISORDER
     Dosage: 4 MG, EVENING
     Route: 065
     Dates: start: 20000728
  26. RISPERDAL [Suspect]
     Active Substance: RISPERIDONE
     Dosage: 2-0-4 MG
     Route: 065
  27. RISPERDAL [Suspect]
     Active Substance: RISPERIDONE
     Dosage: 4 MG, BID
     Route: 065
  28. ZOLOFT [Suspect]
     Active Substance: SERTRALINE HYDROCHLORIDE
     Dosage: 100 MG, IN THE MORNING
     Route: 065
  29. EFFORTIL [Suspect]
     Active Substance: ETILEFRINE HYDROCHLORIDE
     Indication: SCHIZOAFFECTIVE DISORDER
     Dosage: 5 MG, TID
     Route: 065
     Dates: start: 20160729
  30. LADIOMIL [Suspect]
     Active Substance: MAPROTILINE HYDROCHLORIDE
     Dosage: 25 MG, (IN THE EVENING)
     Route: 065

REACTIONS (26)
  - Somnolence [Unknown]
  - Dyskinesia [Recovered/Resolved]
  - Constipation [Unknown]
  - Blood pressure decreased [Unknown]
  - Drug administration error [Unknown]
  - Chest pain [Unknown]
  - Amenorrhoea [Unknown]
  - Visual impairment [Unknown]
  - Fatigue [Unknown]
  - Parkinsonism [Unknown]
  - Asthenia [Unknown]
  - Dry mouth [Unknown]
  - Neck pain [Unknown]
  - Arthralgia [Unknown]
  - Dyspnoea [Unknown]
  - Tachycardia [Unknown]
  - Back pain [Unknown]
  - Heart rate increased [Unknown]
  - Dizziness [Unknown]
  - Diplopia [Unknown]
  - Oral discomfort [Unknown]
  - Dysphagia [Unknown]
  - Lip oedema [Unknown]
  - Alopecia [Unknown]
  - Weight increased [Unknown]
  - Sedation [Unknown]
